FAERS Safety Report 10252025 (Version 1)
Quarter: 2014Q2

REPORT INFORMATION
  Report Type: Spontaneous
  Country: IT (occurrence: IT)
  Receive Date: 20140623
  Receipt Date: 20140623
  Transmission Date: 20141212
  Serious: Yes (Congenital Anomaly)
  Sender: FDA-Public Use
  Company Number: IT-TEVA-489466ISR

PATIENT
  Sex: 0

DRUGS (4)
  1. GLATIRAMER ACETATE [Suspect]
     Route: 065
  2. INTERFERON BETA-1A (IFNB-1A) [Suspect]
     Route: 065
  3. INTERFERON BETA-1A (IFNB-1A) [Suspect]
     Route: 065
  4. IFNB-1B [Suspect]
     Route: 065

REACTIONS (4)
  - Haemangioma [Unknown]
  - Oesophageal atresia [Unknown]
  - Developmental hip dysplasia [Unknown]
  - Jaundice [Unknown]
